FAERS Safety Report 18718762 (Version 5)
Quarter: 2021Q1

REPORT INFORMATION
  Report Type: Spontaneous
  Country: IT (occurrence: IT)
  Receive Date: 20210108
  Receipt Date: 20210224
  Transmission Date: 20210419
  Serious: Yes (Other)
  Sender: FDA-Public Use
  Company Number: IT-BRISTOL-MYERS SQUIBB COMPANY-BMS-2021-001375

PATIENT
  Age: 69 Year
  Sex: Female

DRUGS (2)
  1. DASATINIB. [Suspect]
     Active Substance: DASATINIB
     Indication: CHRONIC MYELOID LEUKAEMIA
     Dosage: 100 MILLIGRAM, QD
     Route: 048
  2. DASATINIB. [Suspect]
     Active Substance: DASATINIB
     Dosage: 100 MILLIGRAM, QOD
     Route: 048

REACTIONS (6)
  - Anaemia [Unknown]
  - Pericardial effusion [Unknown]
  - Nephrotic syndrome [Recovering/Resolving]
  - Focal segmental glomerulosclerosis [Recovering/Resolving]
  - Pleural effusion [Unknown]
  - Off label use [Unknown]
